FAERS Safety Report 15370483 (Version 1)
Quarter: 2018Q3

REPORT INFORMATION
  Report Type: Spontaneous
  Country: US (occurrence: US)
  Receive Date: 20180911
  Receipt Date: 20180911
  Transmission Date: 20181010
  Serious: Yes (Other)
  Sender: FDA-Public Use
  Company Number: US-ASTELLAS-2018US037342

PATIENT
  Sex: Male

DRUGS (1)
  1. XTANDI [Suspect]
     Active Substance: ENZALUTAMIDE
     Indication: PROSTATE CANCER
     Route: 065
     Dates: end: 201808

REACTIONS (4)
  - Malaise [Recovering/Resolving]
  - Dizziness [Recovering/Resolving]
  - Hallucination [Recovered/Resolved]
  - Abdominal discomfort [Recovering/Resolving]
